FAERS Safety Report 7720162-8 (Version None)
Quarter: 2011Q3

REPORT INFORMATION
  Report Type: 
  Country: None (occurrence: None)
  Receive Date: 20110824
  Receipt Date: 20110811
  Transmission Date: 20111222
  Serious: Yes (Death)
  Sender: FDA-Public Use
  Company Number: TUK2011A00094

PATIENT
  Age: 66 Year
  Sex: Male

DRUGS (29)
  1. ACTOS [Suspect]
     Indication: PRODUCT USED FOR UNKNOWN INDICATION
     Dosage: 30 MG ORAL
     Route: 048
     Dates: start: 20100922
  2. BISACODYL (BISACODYL) [Concomitant]
  3. CANDESARTAN CILEXETIL [Concomitant]
  4. DALTEPARIN SODIUM [Concomitant]
  5. MACROGOL (MACROGOL) [Concomitant]
  6. FYBOGEL (PLANTAGO QVATA) [Concomitant]
  7. ACETAMINOPHEN [Concomitant]
  8. SENNA (SENNA ALEXANDRINA) [Concomitant]
  9. ASPIRIN [Concomitant]
  10. GLICLAZIDE (GLICLAZIDE) [Concomitant]
  11. HYDROCORTISOINE (HYDROCORTISONE) [Concomitant]
  12. HYOSCINE HBR HYT [Concomitant]
  13. LACTULOSE [Concomitant]
  14. MOMETASONE FUROATE [Concomitant]
  15. ONDANSETRON [Concomitant]
  16. TADALAFIL [Concomitant]
  17. TRAMADOL HYDROCHLORIDE [Concomitant]
  18. WARFARIN SODIUM [Concomitant]
  19. CLONAZEPAM [Concomitant]
  20. METFORMIN HCL [Concomitant]
  21. FLUTICASONE PROPIONATE [Concomitant]
  22. PANTOPRAZOLE [Concomitant]
  23. ROPIVACAINE HYDROCHLORIDE [Concomitant]
  24. SODIUM CROMOGLICATE (CROMOGLICATE SODIUM) [Concomitant]
  25. TINZAPARIN (TINZAPARIN) [Concomitant]
  26. ASILONE (SIMETICONE) [Concomitant]
  27. FENOFIBRATE [Concomitant]
  28. OMEPRAZOLE [Concomitant]
  29. ENSURE PLUS (VITAMINS NOS, MINERALS NOS, ELECTROLYTES NOS, CARBOHYDRAT [Concomitant]

REACTIONS (5)
  - METASTASES TO LUNG [None]
  - METASTASES TO LIVER [None]
  - DISEASE PROGRESSION [None]
  - METASTASES TO PERITONEUM [None]
  - BLADDER CANCER [None]
